FAERS Safety Report 11363367 (Version 1)
Quarter: 2015Q3

REPORT INFORMATION
  Report Type: Report from Study
  Country: ZA (occurrence: ZA)
  Receive Date: 20150811
  Receipt Date: 20150811
  Transmission Date: 20151125
  Serious: Yes (Other)
  Sender: FDA-Public Use
  Company Number: ZA-ROCHE-1613625

PATIENT
  Sex: Male

DRUGS (1)
  1. XOLAIR [Suspect]
     Active Substance: OMALIZUMAB
     Indication: CHRONIC SPONTANEOUS URTICARIA
     Route: 058
     Dates: start: 20150626, end: 20150626

REACTIONS (5)
  - Blood pressure decreased [Unknown]
  - Angioedema [Unknown]
  - Heart rate increased [Recovered/Resolved]
  - Depressed mood [Unknown]
  - Insomnia [Recovered/Resolved]
